FAERS Safety Report 7306620 (Version 4)
Quarter: 2012Q4

REPORT INFORMATION
  Report Type: Report from Study
  Country: US (occurrence: US)
  Receive Date: 20100305
  Receipt Date: 20121224
  Transmission Date: 20130627
  Serious: Yes (Death, Hospitalization)
  Sender: FDA-Public Use
  Company Number: US-ROCHE-688718

PATIENT
  Sex: Male
  Weight: 90.7 kg

DRUGS (2)
  1. CAPECITABINE [Suspect]
     Indication: COLORECTAL CANCER
     Dosage: FREQUENCY REPORTED AS ^VQD^
     Route: 048
     Dates: start: 20091119, end: 20100114
  2. CAPECITABINE [Suspect]
     Dosage: 1500 MG IN MORNING AND 1000 MG AT NIGHT
     Route: 048
     Dates: start: 20100202, end: 20100225

REACTIONS (4)
  - Brain oedema [Unknown]
  - Metastases to central nervous system [Unknown]
  - Hypotension [Unknown]
  - Colon cancer [Fatal]
